FAERS Safety Report 11186805 (Version 1)
Quarter: 2015Q2

REPORT INFORMATION
  Report Type: Spontaneous
  Country: IT (occurrence: IT)
  Receive Date: 20150614
  Receipt Date: 20150614
  Transmission Date: 20150821
  Serious: Yes (Other)
  Sender: FDA-Public Use
  Company Number: IT-HOSPIRA-1941999

PATIENT
  Age: 64 Year
  Sex: Female
  Weight: 50 kg

DRUGS (3)
  1. PACLITAXEL. [Suspect]
     Active Substance: PACLITAXEL
     Indication: UTERINE CANCER
     Route: 042
     Dates: start: 20130404, end: 20130910
  2. DOXORUBICIN [Suspect]
     Active Substance: DOXORUBICIN
     Indication: UTERINE CANCER
     Route: 042
     Dates: start: 20130404, end: 20130910
  3. CISPLATIN. [Suspect]
     Active Substance: CISPLATIN
     Indication: UTERINE CANCER
     Route: 042
     Dates: start: 20130404, end: 20130910

REACTIONS (2)
  - Hyperpyrexia [Recovering/Resolving]
  - Stomatitis [Recovering/Resolving]

NARRATIVE: CASE EVENT DATE: 20130910
